FAERS Safety Report 25213957 (Version 1)
Quarter: 2025Q2

REPORT INFORMATION
  Report Type: Report from Study
  Country: US (occurrence: US)
  Receive Date: 20250418
  Receipt Date: 20250418
  Transmission Date: 20250717
  Serious: Yes (Hospitalization, Other)
  Sender: ABBVIE
  Company Number: US-ABBVIE-6058194

PATIENT
  Age: 71 Year
  Sex: Male

DRUGS (1)
  1. RINVOQ [Suspect]
     Active Substance: UPADACITINIB
     Indication: Dermatitis atopic
     Route: 048
     Dates: start: 20240803

REACTIONS (9)
  - Lung carcinoma cell type unspecified stage IV [Unknown]
  - Hepatic cancer stage IV [Unknown]
  - Nasopharyngitis [Not Recovered/Not Resolved]
  - Nasopharyngitis [Recovered/Resolved]
  - Tinea pedis [Recovering/Resolving]
  - Rash [Recovering/Resolving]
  - Pneumonia [Unknown]
  - Cardiac failure congestive [Unknown]
  - Lung cancer metastatic [Unknown]

NARRATIVE: CASE EVENT DATE: 20241214
